FAERS Safety Report 15263385 (Version 2)
Quarter: 2019Q1

REPORT INFORMATION
  Report Type: Spontaneous
  Country: SE (occurrence: SE)
  Receive Date: 20180810
  Receipt Date: 20190323
  Transmission Date: 20190417
  Serious: Yes (Life-Threatening, Hospitalization, Other)
  Sender: FDA-Public Use
  Company Number: SE-ACCORD-070611

PATIENT
  Age: 28 Year
  Sex: Female

DRUGS (2)
  1. AMLODIPINE [Suspect]
     Active Substance: AMLODIPINE BESYLATE
     Route: 048
  2. METOPROLOL. [Suspect]
     Active Substance: METOPROLOL
     Route: 048

REACTIONS (2)
  - Shock [Recovered/Resolved]
  - Overdose [Unknown]
